FAERS Safety Report 16782736 (Version 1)
Quarter: 2019Q3

REPORT INFORMATION
  Report Type: Spontaneous
  Country: NL (occurrence: NL)
  Receive Date: 20190906
  Receipt Date: 20190906
  Transmission Date: 20191005
  Serious: Yes (Other)
  Sender: FDA-Public Use
  Company Number: PHHY2018NL202316

PATIENT
  Sex: Male

DRUGS (3)
  1. MORPHINE [Concomitant]
     Active Substance: MORPHINE
     Indication: BACK PAIN
     Route: 065
  2. PREDNISONE. [Suspect]
     Active Substance: PREDNISONE
     Indication: PARALYSIS
     Dosage: UNK
     Route: 065
  3. MORPHINE [Concomitant]
     Active Substance: MORPHINE
     Indication: HEADACHE

REACTIONS (15)
  - Hyperhidrosis [Unknown]
  - Metastases to central nervous system [Recovering/Resolving]
  - Malaise [Unknown]
  - Eye disorder [Unknown]
  - Disturbance in attention [Unknown]
  - Fatigue [Unknown]
  - Pyrexia [Not Recovered/Not Resolved]
  - Pain [Unknown]
  - Product used for unknown indication [Unknown]
  - Diplopia [Unknown]
  - Nausea [Unknown]
  - Vomiting [Unknown]
  - Meningitis [Recovering/Resolving]
  - Metastases to lymph nodes [Recovering/Resolving]
  - Vertigo [Unknown]
